FAERS Safety Report 9727173 (Version 1)
Quarter: 2013Q4

REPORT INFORMATION
  Report Type: Spontaneous
  Country: US (occurrence: US)
  Receive Date: 20131203
  Receipt Date: 20131203
  Transmission Date: 20140711
  Serious: No
  Sender: FDA-Public Use
  Company Number: US-BRISTOL-MYERS SQUIBB COMPANY-19391341

PATIENT
  Age: 62 Year
  Sex: Female

DRUGS (1)
  1. KOMBOGLYZE [Suspect]
     Dosage: STRENGTH: 5.0-1000
     Route: 048

REACTIONS (1)
  - Drug dose omission [Unknown]
